FAERS Safety Report 17159153 (Version 2)
Quarter: 2019Q4

REPORT INFORMATION
  Report Type: Spontaneous
  Country: SE (occurrence: SE)
  Receive Date: 20191216
  Receipt Date: 20191224
  Transmission Date: 20200122
  Serious: Yes (Death)
  Sender: FDA-Public Use
  Company Number: SE-PFIZER INC-2019538506

PATIENT
  Age: 79 Year
  Sex: Female

DRUGS (1)
  1. ZYVOXID [Suspect]
     Active Substance: LINEZOLID
     Indication: DEVICE RELATED INFECTION
     Dosage: 300 MG, DAILY
     Route: 048
     Dates: start: 20190830, end: 201911

REACTIONS (2)
  - Thrombosis [Fatal]
  - Ischaemic stroke [Fatal]

NARRATIVE: CASE EVENT DATE: 2019
